FAERS Safety Report 18129528 (Version 1)
Quarter: 2020Q3

REPORT INFORMATION
  Report Type: Spontaneous
  Country: US (occurrence: US)
  Receive Date: 20200810
  Receipt Date: 20200810
  Transmission Date: 20201103
  Serious: Yes (Death, Other)
  Sender: FDA-Public Use
  Company Number: US-ADVANZ PHARMA-202007007578

PATIENT

DRUGS (9)
  1. PREDNISONE. [Suspect]
     Active Substance: PREDNISONE
     Dosage: 3 DOSAGE FORM, QD EVERY MORNING
     Route: 048
  2. CLONIDINE. [Suspect]
     Active Substance: CLONIDINE
     Indication: ALCOHOL WITHDRAWAL SYNDROME
     Dosage: 0.1 MG/ 24 H (TWO PATCHES IN PLACE)
     Route: 062
  3. GABAPENTIN. [Suspect]
     Active Substance: GABAPENTIN
     Dosage: 2 DOSAGE FORM, QD AT BEDTIME
     Route: 048
  4. FOLIC ACID. [Concomitant]
     Active Substance: FOLIC ACID
     Dosage: 1 DOSAGE FORM, QD
     Route: 048
  5. PREDNISONE. [Suspect]
     Active Substance: PREDNISONE
     Dosage: THEN TAPER OFF PER INSTRUCTIONS
  6. MULTIVITAMIN?IRON [Concomitant]
     Dosage: 1 DOSAGE FORM, QD
     Route: 048
  7. CLONIDINE. [Suspect]
     Active Substance: CLONIDINE
     Dosage: 0.1 MG/24 H (OF THE LAST REMAINING PATCH ON THE 4TH DAY
     Route: 062
  8. GABAPENTIN. [Suspect]
     Active Substance: GABAPENTIN
     Indication: ALCOHOL WITHDRAWAL SYNDROME
     Dosage: 1 DOSAGE FORM, TID
     Route: 048
  9. GABAPENTIN. [Suspect]
     Active Substance: GABAPENTIN
     Dosage: 1 DOSAGE FORM, BID
     Route: 048

REACTIONS (2)
  - Intentional self-injury [Fatal]
  - Completed suicide [Fatal]
